FAERS Safety Report 9882588 (Version 6)
Quarter: 2015Q3

REPORT INFORMATION
  Report Type: Spontaneous
  Country: JP (occurrence: JP)
  Receive Date: 20140207
  Receipt Date: 20150730
  Transmission Date: 20151125
  Serious: Yes (Hospitalization, Other)
  Sender: FDA-Public Use
  Company Number: JP-MERCK-1402JPN003306

PATIENT
  Age: 72 Year
  Sex: Female
  Weight: 52 kg

DRUGS (14)
  1. VERAPAMIL [Concomitant]
     Active Substance: VERAPAMIL HYDROCHLORIDE
     Dosage: 120 MG DIVIDED 3 TIMES DAILY
  2. BUFFERIN [Concomitant]
     Active Substance: ASPIRIN
     Indication: ATRIAL FIBRILLATION
     Dosage: 81 MG, QAM
     Route: 048
  3. PERSANTIN [Concomitant]
     Active Substance: DIPYRIDAMOLE
     Dosage: 300 MG DIVIDED 2 TIMES DAILY IN THE MORNING AND IN THE EVENING
     Route: 048
  4. ECARD HD [Concomitant]
     Active Substance: CANDESARTAN CILEXETIL\HYDROCHLOROTHIAZIDE
     Indication: HYPERTENSION
     Dosage: 1 TABLET ONCE DAILY IN THE MORNING
     Route: 048
  5. JANUVIA [Suspect]
     Active Substance: SITAGLIPTIN PHOSPHATE
     Indication: TYPE 2 DIABETES MELLITUS
     Dosage: 50 MG ONCE DAILY IN THE MORNING
     Route: 048
     Dates: start: 201211, end: 20130811
  6. BLOPRESS [Concomitant]
     Active Substance: CANDESARTAN CILEXETIL
     Indication: HYPERTENSION
     Dosage: 8 MG ONCE DAILY IN THE EVENING
     Route: 048
  7. BEZAFIBRATE [Concomitant]
     Active Substance: BEZAFIBRATE
     Indication: DYSLIPIDAEMIA
     Dosage: 200 MG ONCE DAILY IN THE MORNING
     Route: 048
  8. MECOBALAMIN [Concomitant]
     Active Substance: METHYLCOBALAMIN
     Dosage: 1500 MICROGRAM DIVIDED 3 TIMES DAILY
  9. MAGNESIUM ASPARTATE (+) POTASSIUM ASPARTATE [Concomitant]
     Dosage: 1 TABLET ONCE DAILY IN THE MORNING
  10. CIBENOL [Interacting]
     Active Substance: CIFENLINE
     Indication: ATRIAL FIBRILLATION
     Dosage: 100 MG, TID (300 MG DIVIDED 3 TIMES DAILY)
     Route: 048
     Dates: start: 2007, end: 20130821
  11. ARTIST [Concomitant]
     Active Substance: CARVEDILOL
     Indication: HYPERTENSION
     Dosage: 20 MG DAILY IN THE MORNING
     Route: 048
  12. ADALAT CC [Concomitant]
     Active Substance: NIFEDIPINE
     Indication: HYPERTENSION
     Dosage: 60 MG DIVIDED 2 TIMES DAILY IN THE MORNING AND IN THE EVENING
     Route: 048
  13. HALFDIGOXIN [Concomitant]
     Active Substance: DIGOXIN
     Indication: ATRIAL FIBRILLATION
     Dosage: 0.125 MG, IN THE MORNING
     Route: 048
  14. FRANDOL TAPE S [Concomitant]
     Active Substance: ISOSORBIDE DINITRATE
     Dosage: 40 MG, QD, FORMULATION: TAP
     Route: 062

REACTIONS (3)
  - Drug interaction [Unknown]
  - Hypoglycaemia [Recovered/Resolved]
  - Hypoglycaemic coma [Recovered/Resolved]

NARRATIVE: CASE EVENT DATE: 20130811
